FAERS Safety Report 12217825 (Version 1)
Quarter: 2016Q1

REPORT INFORMATION
  Report Type: Spontaneous
  Country: US (occurrence: None)
  Receive Date: 20160328
  Receipt Date: 20160328
  Transmission Date: 20160526
  Serious: No
  Sender: FDA-Public Use
  Company Number: None

PATIENT
  Age: 55 Year
  Sex: Female

DRUGS (5)
  1. XALATAN [Concomitant]
     Active Substance: LATANOPROST
  2. RIBAVARIN [Concomitant]
     Active Substance: RIBAVIRIN
  3. HARVONI [Suspect]
     Active Substance: LEDIPASVIR\SOFOSBUVIR
     Indication: HEPATITIS C
     Dosage: 1 TABLET QD PO
     Route: 048
     Dates: start: 20160223
  4. OMEPRAZOLE. [Concomitant]
     Active Substance: OMEPRAZOLE
  5. DORZOL/TIMOLOL [Concomitant]
     Active Substance: DORZOLAMIDE HYDROCHLORIDE\TIMOLOL MALEATE

REACTIONS (5)
  - Productive cough [None]
  - Nasopharyngitis [None]
  - Headache [None]
  - Pruritus [None]
  - Fatigue [None]

NARRATIVE: CASE EVENT DATE: 20160225
